FAERS Safety Report 6583015-7 (Version None)
Quarter: 2010Q1

REPORT INFORMATION
  Report Type: 
  Country: None (occurrence: None)
  Receive Date: 20100216
  Receipt Date: 20100211
  Transmission Date: 20100710
  Serious: Yes (Hospitalization)
  Sender: FDA-Public Use
  Company Number: DE-ROCHE-654753

PATIENT
  Sex: Female
  Weight: 66.4 kg

DRUGS (5)
  1. BEVACIZUMAB [Suspect]
     Indication: BREAST CANCER
     Dosage: FORM: INFUSION,
     Route: 042
     Dates: start: 20090609
  2. CYCLOPHOSPHAMIDE [Suspect]
     Indication: BREAST CANCER
     Dosage: FORM: INFUSION,
     Route: 042
     Dates: start: 20090609, end: 20090925
  3. EPIRUBICIN [Suspect]
     Indication: BREAST CANCER
     Dosage: FORM: INFUSION,
     Route: 042
     Dates: start: 20090609, end: 20090925
  4. FLUOROURACIL [Suspect]
     Indication: BREAST CANCER
     Dosage: FORM: INFUSION, LAST DOSE PRIOR TO THE SAE: 28 JULY 2009.
     Route: 042
     Dates: start: 20090609
  5. ATACAND HCT [Concomitant]
     Dates: start: 20090504

REACTIONS (2)
  - ANGINA PECTORIS [None]
  - GENERAL PHYSICAL HEALTH DETERIORATION [None]
